FAERS Safety Report 4971025-2 (Version None)
Quarter: 2006Q2

REPORT INFORMATION
  Report Type: 
  Country: None (occurrence: None)
  Receive Date: 20060411
  Receipt Date: 20060411
  Transmission Date: 20061013
  Serious: Yes (Disabling, Other)
  Sender: FDA-Public Use
  Company Number: None

PATIENT
  Sex: Male

DRUGS (1)
  1. ENDOSOL EXTRA [Suspect]
     Indication: CATARACT OPERATION
     Dosage: ONE BOTTLE ONCE OPHTHALMIC
     Route: 047
     Dates: start: 20060201, end: 20060201

REACTIONS (4)
  - ANTERIOR CHAMBER DISORDER [None]
  - CATARACT OPERATION COMPLICATION [None]
  - ENDOPHTHALMITIS [None]
  - POOR QUALITY DRUG ADMINISTERED [None]
